FAERS Safety Report 25447144 (Version 1)
Quarter: 2025Q2

REPORT INFORMATION
  Report Type: Spontaneous
  Country: US (occurrence: US)
  Receive Date: 20250617
  Receipt Date: 20250617
  Transmission Date: 20250717
  Serious: No
  Sender: SANOFI AVENTIS
  Company Number: US-SA-2025SA167291

PATIENT
  Sex: Female

DRUGS (1)
  1. DUPIXENT [Suspect]
     Active Substance: DUPILUMAB
     Indication: Dermatitis atopic
     Dosage: 300 MG
     Route: 058
     Dates: start: 202505

REACTIONS (8)
  - Oropharyngeal pain [Unknown]
  - Dysphagia [Unknown]
  - Gait disturbance [Unknown]
  - Toothache [Unknown]
  - Cough [Unknown]
  - Wheezing [Unknown]
  - Skin exfoliation [Unknown]
  - Nasal congestion [Unknown]
